FAERS Safety Report 5504950-4 (Version None)
Quarter: 2007Q4

REPORT INFORMATION
  Report Type: 
  Country: None (occurrence: None)
  Receive Date: 20071102
  Receipt Date: 20071029
  Transmission Date: 20080405
  Serious: Yes (Death, Hospitalization)
  Sender: FDA-Public Use
  Company Number: US-NOVOPROD-266010

PATIENT

DRUGS (3)
  1. NOVOLIN 70/30 [Suspect]
     Dosage: UNKNOWN
     Route: 058
  2. NOVOLIN R [Suspect]
     Dosage: UNKNOWN
     Route: 058
  3. CORTIZONE                          /00028601/ [Concomitant]
     Indication: DRUG USE FOR UNKNOWN INDICATION
     Dosage: UNKNOWN
     Route: 030

REACTIONS (1)
  - DYSPNOEA [None]
